APPROVED DRUG PRODUCT: AMICAR
Active Ingredient: AMINOCAPROIC ACID
Strength: 250MG/ML **Federal Register determination that product was not discontinued or withdrawn for safety or effectiveness reasons**
Dosage Form/Route: INJECTABLE;INJECTION
Application: N015229 | Product #002
Applicant: EPIC PHARMA LLC
Approved: Approved Prior to Jan 1, 1982 | RLD: Yes | RS: No | Type: DISCN